FAERS Safety Report 8819707 (Version 1)
Quarter: 2012Q4

REPORT INFORMATION
  Report Type: Report from Study
  Country: CA (occurrence: CA)
  Receive Date: 20121001
  Receipt Date: 20121001
  Transmission Date: 20130627
  Serious: Yes (Other)
  Sender: FDA-Public Use
  Company Number: CA-JNJFOC-20120908814

PATIENT
  Sex: Female
  Weight: 106 kg

DRUGS (5)
  1. REMICADE [Suspect]
     Indication: RHEUMATOID ARTHRITIS
     Route: 042
  2. EFFEXOR [Concomitant]
     Route: 065
  3. NORVASC [Concomitant]
     Route: 065
  4. ATENOLOL [Concomitant]
     Route: 065
  5. AVALIDE [Concomitant]
     Route: 065

REACTIONS (1)
  - Mass [Unknown]
